FAERS Safety Report 5443356-3 (Version None)
Quarter: 2007Q3

REPORT INFORMATION
  Report Type: 
  Country: None (occurrence: None)
  Receive Date: 20070905
  Receipt Date: 20070829
  Transmission Date: 20080115
  Serious: Yes (Hospitalization)
  Sender: FDA-Public Use
  Company Number: A0677372A

PATIENT
  Age: 86 Year
  Sex: Female

DRUGS (8)
  1. FLOVENT [Suspect]
     Indication: EMPHYSEMA
     Dosage: 2PUFF TWICE PER DAY
     Route: 055
  2. COMBIVENT [Concomitant]
  3. PLAVIX [Concomitant]
  4. NEBULIZER [Concomitant]
  5. NORVASC [Concomitant]
  6. MICARDIS [Concomitant]
  7. UNSPECIFIED MEDICATION [Concomitant]
  8. UNKNOWN-OTC MEDICATION [Concomitant]

REACTIONS (10)
  - CROHN'S DISEASE [None]
  - DRY EYE [None]
  - DRY THROAT [None]
  - DYSPHONIA [None]
  - DYSPNOEA [None]
  - EMPHYSEMA [None]
  - EYE PRURITUS [None]
  - INCREASED UPPER AIRWAY SECRETION [None]
  - SPEECH DISORDER [None]
  - WHEEZING [None]
